FAERS Safety Report 5406063-9 (Version None)
Quarter: 2007Q3

REPORT INFORMATION
  Report Type: 
  Country: None (occurrence: None)
  Receive Date: 20070806
  Receipt Date: 20070802
  Transmission Date: 20080115
  Serious: Yes (Hospitalization)
  Sender: FDA-Public Use
  Company Number: B0481907A

PATIENT
  Age: 43 Year
  Sex: Male

DRUGS (2)
  1. AMOXICILLIN [Suspect]
     Indication: DRUG USE FOR UNKNOWN INDICATION
     Route: 048
     Dates: start: 20060801, end: 20060801
  2. OROPIVALONE [Suspect]
     Indication: DRUG USE FOR UNKNOWN INDICATION
     Route: 048

REACTIONS (3)
  - ANGIOEDEMA [None]
  - RESPIRATORY DISORDER [None]
  - URTICARIA [None]
